FAERS Safety Report 19545414 (Version 1)
Quarter: 2021Q3

REPORT INFORMATION
  Report Type: Spontaneous
  Country: US (occurrence: US)
  Receive Date: 20210713
  Receipt Date: 20210713
  Transmission Date: 20211014
  Serious: Yes (Other)
  Sender: FDA-Public Use
  Company Number: US-ENDO PHARMACEUTICALS INC-2021-006010

PATIENT
  Age: 45 Year
  Sex: Female

DRUGS (4)
  1. ZANTAC [Suspect]
     Active Substance: RANITIDINE HYDROCHLORIDE
     Indication: MORNING SICKNESS
     Dosage: UNK UNKNOWN, DAILY
     Route: 065
     Dates: start: 200312, end: 200407
  2. RANITIDINE HYDROCHLORIDE. [Suspect]
     Active Substance: RANITIDINE HYDROCHLORIDE
     Indication: MORNING SICKNESS
     Dosage: UNK UNKNOWN, DAILY
     Route: 065
     Dates: start: 200312, end: 200407
  3. RANITIDINE. [Suspect]
     Active Substance: RANITIDINE
     Indication: MORNING SICKNESS
     Dosage: UNK UNKNOWN, DAILY
     Route: 065
     Dates: start: 200312, end: 200407
  4. ZANTAC [Suspect]
     Active Substance: RANITIDINE HYDROCHLORIDE
     Indication: MORNING SICKNESS
     Dosage: UNK UNKNOWN, DAILY
     Route: 065
     Dates: start: 200312, end: 200407

REACTIONS (1)
  - Renal cancer [Unknown]

NARRATIVE: CASE EVENT DATE: 20110624
